FAERS Safety Report 7203649-6 (Version None)
Quarter: 2010Q4

REPORT INFORMATION
  Report Type: 
  Country: None (occurrence: None)
  Receive Date: 20101230
  Receipt Date: 20101221
  Transmission Date: 20110411
  Serious: Yes (Hospitalization)
  Sender: FDA-Public Use
  Company Number: FR-ASTRAZENECA-2010SE60821

PATIENT
  Age: 829 Month
  Sex: Female

DRUGS (6)
  1. MOPRAL [Suspect]
     Route: 048
  2. HERCEPTIN [Suspect]
     Indication: BREAST CANCER
     Dosage: EVERY THREE WEEKS
     Route: 048
     Dates: start: 20080801
  3. MOTILIUM [Suspect]
     Route: 048
  4. ALDACTONE [Suspect]
     Route: 048
  5. DOLIPRANE [Suspect]
     Route: 048
  6. TEMESTA [Suspect]
     Route: 048

REACTIONS (1)
  - LUNG DISORDER [None]
